FAERS Safety Report 4335969-7 (Version None)
Quarter: 2004Q2

REPORT INFORMATION
  Report Type: 
  Country: None (occurrence: None)
  Receive Date: 20040406
  Receipt Date: 20040330
  Transmission Date: 20050107
  Serious: Yes (Hospitalization, Disabling)
  Sender: FDA-Public Use
  Company Number: 2004CG00499

PATIENT
  Age: 65 Year
  Sex: Male
  Weight: 60 kg

DRUGS (2)
  1. IRESSA [Suspect]
     Indication: LUNG NEOPLASM MALIGNANT
     Dosage: 250 MG DAILY; PO
     Route: 048
     Dates: start: 20040105
  2. SINTROM [Suspect]
     Indication: CARDIAC VALVE DISEASE
     Dosage: 4 MG DAILY; PO
     Route: 048

REACTIONS (4)
  - ABDOMINAL HAEMATOMA [None]
  - ANAEMIA [None]
  - DRUG INTERACTION [None]
  - PROTHROMBIN LEVEL DECREASED [None]
